FAERS Safety Report 16595160 (Version 6)
Quarter: 2020Q1

REPORT INFORMATION
  Report Type: Report from Study
  Country: US (occurrence: US)
  Receive Date: 20190718
  Receipt Date: 20200225
  Transmission Date: 20200409
  Serious: Yes (Hospitalization)
  Sender: FDA-Public Use
  Company Number: US-BAXTER-2019BAX013717

PATIENT
  Age: 8 Year
  Sex: Male
  Weight: 57 kg

DRUGS (33)
  1. CYCLOPHOSPHAMIDE FOR INJECTION, USP [Suspect]
     Active Substance: CYCLOPHOSPHAMIDE
     Dosage: LAST DOSE PRIOR TO THE SAES OF RECTAL CELLULITIS AND NEUTROPHIL COUNT DECREASED
     Route: 042
     Dates: start: 20190523, end: 20190523
  2. INCB018424 [Suspect]
     Active Substance: RUXOLITINIB
     Dosage: TABLET, LAST DOSE PRIOR TO THE SAE FEBRILE NEUTROPENIA
     Route: 048
     Dates: start: 20190508, end: 20190508
  3. VINCRISTINE [Suspect]
     Active Substance: VINCRISTINE
     Indication: ACUTE LYMPHOCYTIC LEUKAEMIA
     Dosage: FIRST DOSE, THERAPY DURATION: 6 MONTHS 17 DAYS
     Route: 042
     Dates: start: 20181204, end: 20190620
  4. METHOTREXATE. [Suspect]
     Active Substance: METHOTREXATE
     Dosage: LAST DOSE OF PRIOR TO THE SAES OF RECTAL CELLULITIS AND NEUTROPHIL COUNT DECREASED
     Route: 037
     Dates: start: 20190530, end: 20190530
  5. MERCAPTOPURINE. [Suspect]
     Active Substance: MERCAPTOPURINE
     Dosage: LAST DOSE PRIOR TO THE SAES OF RECTAL HEMORRHAGE, PLATELET COUNT DECREASED, NEUTROPENIA AND NEUTROPH
     Route: 048
  6. CYTARABINE. [Suspect]
     Active Substance: CYTARABINE
     Indication: ACUTE LYMPHOCYTIC LEUKAEMIA
     Dosage: FIRST DOSE, THERAPY DURATION: 6 MONTHS AND 14 DAYS
     Route: 042
     Dates: start: 20181120, end: 20190602
  7. CYCLOPHOSPHAMIDE FOR INJECTION, USP [Suspect]
     Active Substance: CYCLOPHOSPHAMIDE
     Dosage: DOSE INCREASED DUE TO WEIGHT CHANGE
     Route: 042
     Dates: start: 20190523, end: 20190523
  8. INCB018424 [Suspect]
     Active Substance: RUXOLITINIB
     Dosage: TABLET, TEMPORARILY INTERRUPTED AGAIN
     Route: 048
     Dates: start: 20190321, end: 20190404
  9. DOXORUBICIN [Suspect]
     Active Substance: DOXORUBICIN
     Indication: ACUTE LYMPHOCYTIC LEUKAEMIA
     Dosage: FIRST DOSE
     Route: 042
     Dates: start: 20190425, end: 20190509
  10. THIOGUANINE [Suspect]
     Active Substance: THIOGUANINE
     Indication: ACUTE LYMPHOCYTIC LEUKAEMIA
     Dosage: FIRST DOSE
     Route: 048
     Dates: start: 20190523, end: 20190604
  11. PEGASPARGASE [Suspect]
     Active Substance: PEGASPARGASE
     Indication: ACUTE LYMPHOCYTIC LEUKAEMIA
     Dosage: FIRST DOSE
     Route: 042
     Dates: start: 20181204
  12. CYCLOPHOSPHAMIDE FOR INJECTION, USP [Suspect]
     Active Substance: CYCLOPHOSPHAMIDE
     Dosage: LAST DOSE PRIOR TO THE SAE OF FEBRILE NEUTROPENIA
     Route: 042
     Dates: start: 20190103, end: 20190103
  13. INCB018424 [Suspect]
     Active Substance: RUXOLITINIB
     Indication: ACUTE LYMPHOCYTIC LEUKAEMIA
     Dosage: TABLET, FIRST DOSE, HELD DUE TO PLANNED DOSE HOLD, DURATION: 1 MONTH 29 DAYS
     Route: 048
     Dates: start: 20181120, end: 20190117
  14. DOXORUBICIN [Suspect]
     Active Substance: DOXORUBICIN
     Dosage: LAST DOSE PRIOR TO SAES OF RECTAL CELLULITIS, NEUTROPHIL COUNT DECREASED AND FEBRILE NEUTROPENIA
     Route: 042
     Dates: start: 20190509, end: 20190509
  15. MERCAPTOPURINE. [Suspect]
     Active Substance: MERCAPTOPURINE
     Dosage: TABLET
     Route: 048
     Dates: start: 20190705
  16. THIOGUANINE [Suspect]
     Active Substance: THIOGUANINE
     Dosage: LAST DOSE PRIOR TO THE SAES OF RECTAL CELLULITIS, NEUTROPHIL COUNT DECREASED AND FEBRILE NEUTROPENIA
     Route: 048
     Dates: start: 20190604, end: 20190604
  17. MERCAPTOPURINE. [Suspect]
     Active Substance: MERCAPTOPURINE
     Dosage: LAST DOSE PRIOR TO SAES OF RECTAL CELLULITIS, NEUTROPHIL COUNT DECREASED AND FEBRILE NEUTROPENIA
     Route: 048
     Dates: start: 20190417, end: 20190417
  18. CYTARABINE. [Suspect]
     Active Substance: CYTARABINE
     Dosage: LAST DOSE PRIOR TO THE SAES OF RECTAL CELLULITIS AND NEUTROPHIL COUNT DECREASED
     Route: 042
     Dates: start: 20190602, end: 20190602
  19. METHOTREXATE. [Suspect]
     Active Substance: METHOTREXATE
     Route: 037
     Dates: start: 20190705
  20. PEGASPARGASE [Suspect]
     Active Substance: PEGASPARGASE
     Route: 042
     Dates: start: 20190705
  21. CYCLOPHOSPHAMIDE FOR INJECTION, USP [Suspect]
     Active Substance: CYCLOPHOSPHAMIDE
     Indication: ACUTE LYMPHOCYTIC LEUKAEMIA
     Dosage: FIRST DOSE
     Route: 042
     Dates: start: 20181120
  22. INCB018424 [Suspect]
     Active Substance: RUXOLITINIB
     Dosage: TABLET, DOSE ADJUSTED DUE TO WEIGHT GAIN, DURATION: 1 MONTH 27 DAYS
     Route: 048
     Dates: start: 20190425, end: 20190620
  23. INCB018424 [Suspect]
     Active Substance: RUXOLITINIB
     Dosage: TABLET, LAST DOSE PRIOR TO THE SAES OF RECTAL CELLULITIS AND NEUTROPHIL COUNT DECREASED
     Route: 048
     Dates: start: 20190604, end: 20190604
  24. VINCRISTINE [Suspect]
     Active Substance: VINCRISTINE
     Route: 042
     Dates: start: 20190705
  25. METHOTREXATE. [Suspect]
     Active Substance: METHOTREXATE
     Indication: ACUTE LYMPHOCYTIC LEUKAEMIA
     Dosage: FIRST DOSE, THERAPY DURATION: 7 MONTHS 1 DAY
     Route: 037
     Dates: start: 20181120, end: 20190620
  26. INCB018424 [Suspect]
     Active Substance: RUXOLITINIB
     Dosage: TABLET
     Route: 048
     Dates: start: 20190705
  27. VINCRISTINE [Suspect]
     Active Substance: VINCRISTINE
     Dosage: LAST DOSE PRIOR TO SAES OF RECTAL CELLULITIS, NEUTROPHIL COUNT DECREASED AND FEBRILE NEUTROPENIA
     Route: 042
     Dates: start: 20190509, end: 20190509
  28. METHOTREXATE. [Suspect]
     Active Substance: METHOTREXATE
     Dosage: LAST DOSE PRIOR TO SERIOUS ADVERSE EVENT (SAE) FEBRILE NEUTROPENIA
     Route: 037
     Dates: start: 20190425, end: 20190425
  29. MERCAPTOPURINE. [Suspect]
     Active Substance: MERCAPTOPURINE
     Indication: ACUTE LYMPHOCYTIC LEUKAEMIA
     Dosage: FIRST DOSE, THERAPY DURATION: 7 MONTHS 1 DAY
     Route: 048
     Dates: start: 20181120, end: 20190620
  30. CYTARABINE. [Suspect]
     Active Substance: CYTARABINE
     Dosage: LAST DOSE PRIOR TO THE SAE OF FEBRILE NEUTROPENIA
     Route: 042
     Dates: start: 20190110, end: 20190110
  31. PEGASPARGASE [Suspect]
     Active Substance: PEGASPARGASE
     Dosage: LAST DOSE PRIOR TO THE SAES OF FEBRILE NEUTROPENIA, RECTAL CELLULITIS AND NEUTROPHIL COUNT DECREASED
     Route: 042
     Dates: start: 20190429, end: 20190429
  32. PEGASPARGASE [Suspect]
     Active Substance: PEGASPARGASE
     Dosage: DOSE ADJUSTED DUE TO WEIGHT CHANGE
     Route: 042
     Dates: start: 20190606, end: 20190620
  33. PEGASPARGASE [Suspect]
     Active Substance: PEGASPARGASE
     Dosage: DOSE ADJUSTED DUE TO WEIGHT GAIN
     Route: 042
     Dates: start: 20190429

REACTIONS (3)
  - Febrile neutropenia [Recovered/Resolved]
  - Neutrophil count decreased [Recovered/Resolved]
  - Cellulitis [Recovered/Resolved]

NARRATIVE: CASE EVENT DATE: 20190517
